FAERS Safety Report 6289361-9 (Version None)
Quarter: 2009Q3

REPORT INFORMATION
  Report Type: 
  Country: None (occurrence: None)
  Receive Date: 20090728
  Receipt Date: 20090728
  Transmission Date: 20100115
  Serious: Yes (Life-Threatening)
  Sender: FDA-Public Use
  Company Number: None

PATIENT
  Age: 88 Year
  Sex: Male
  Weight: 57.1532 kg

DRUGS (3)
  1. CIPROFLOXACIN [Suspect]
     Indication: CATHETER RELATED COMPLICATION
     Dosage: 400MG Q12H IV
     Route: 042
     Dates: start: 20090507, end: 20090508
  2. CIPROFLOXACIN [Suspect]
     Indication: LEUKOCYTOSIS
     Dosage: 400MG Q12H IV
     Route: 042
     Dates: start: 20090507, end: 20090508
  3. CIPROFLOXACIN [Suspect]
     Indication: POST PROCEDURAL COMPLICATION
     Dosage: 400MG Q12H IV
     Route: 042
     Dates: start: 20090507, end: 20090508

REACTIONS (1)
  - METHAEMOGLOBINAEMIA [None]
